FAERS Safety Report 13470957 (Version 1)
Quarter: 2017Q2

REPORT INFORMATION
  Report Type: Spontaneous
  Country: US (occurrence: US)
  Receive Date: 20170424
  Receipt Date: 20170424
  Transmission Date: 20170830
  Serious: No
  Sender: FDA-Public Use
  Company Number: US-TEVA-671804USA

PATIENT
  Sex: Female

DRUGS (1)
  1. LOSARTAN POTASSIUM. [Suspect]
     Active Substance: LOSARTAN POTASSIUM
     Indication: HEART RATE INCREASED
     Dosage: 25 MILLIGRAM DAILY;
     Route: 048
     Dates: end: 201506

REACTIONS (8)
  - Malaise [Unknown]
  - Loss of personal independence in daily activities [Unknown]
  - Dysgeusia [Unknown]
  - Fatigue [Unknown]
  - Product substitution issue [Unknown]
  - Product taste abnormal [Unknown]
  - Somnolence [Unknown]
  - Dizziness [Unknown]
